FAERS Safety Report 15705177 (Version 6)
Quarter: 2019Q2

REPORT INFORMATION
  Report Type: Spontaneous
  Country: US (occurrence: US)
  Receive Date: 20181210
  Receipt Date: 20190522
  Transmission Date: 20190711
  Serious: Yes (Hospitalization)
  Sender: FDA-Public Use
  Company Number: US-PFIZER INC-2018504671

PATIENT
  Age: 54 Year
  Sex: Male
  Weight: 83.91 kg

DRUGS (2)
  1. LYRICA [Suspect]
     Active Substance: PREGABALIN
     Indication: NEURALGIA
     Dosage: 150 MG, 3X/DAY
     Route: 048
  2. LYRICA [Suspect]
     Active Substance: PREGABALIN
     Indication: DEPRESSION

REACTIONS (8)
  - Viral infection [Unknown]
  - Drug withdrawal syndrome [Unknown]
  - Haematology test abnormal [Unknown]
  - Cold sweat [Unknown]
  - Feeling of body temperature change [Unknown]
  - Chills [Unknown]
  - Nervousness [Unknown]
  - Hyperhidrosis [Unknown]
